FAERS Safety Report 15496561 (Version 1)
Quarter: 2018Q4

REPORT INFORMATION
  Report Type: Spontaneous
  Country: US (occurrence: US)
  Receive Date: 20181013
  Receipt Date: 20181013
  Transmission Date: 20190205
  Serious: No
  Sender: FDA-Public Use
  Company Number: US-JNJFOC-20180614934

PATIENT
  Age: 74 Year
  Sex: Female

DRUGS (10)
  1. VITAMIN D [Concomitant]
     Active Substance: CHOLECALCIFEROL
  2. IMBRUVICA [Suspect]
     Active Substance: IBRUTINIB
     Indication: B-CELL LYMPHOMA
     Route: 048
     Dates: start: 201803
  3. TOCOPHEROL [Concomitant]
     Active Substance: TOCOPHEROL
  4. CLARITIN [Concomitant]
     Active Substance: LORATADINE
  5. IBUPROFEN. [Concomitant]
     Active Substance: IBUPROFEN
  6. TYLENOL [Concomitant]
     Active Substance: ACETAMINOPHEN
  7. FLUTICASONE. [Concomitant]
     Active Substance: FLUTICASONE
  8. MULTIVITAMINS [Concomitant]
     Active Substance: VITAMINS
  9. IMBRUVICA [Suspect]
     Active Substance: IBRUTINIB
     Indication: B-CELL LYMPHOMA
     Route: 048
     Dates: start: 20180611
  10. IRON [Concomitant]
     Active Substance: IRON

REACTIONS (5)
  - Product use in unapproved indication [Unknown]
  - Arthralgia [Unknown]
  - Fatigue [Unknown]
  - Off label use [Unknown]
  - Myalgia [Unknown]

NARRATIVE: CASE EVENT DATE: 201803
